FAERS Safety Report 9719217 (Version 1)
Quarter: 2013Q4

REPORT INFORMATION
  Report Type: Report from Study
  Country: US (occurrence: US)
  Receive Date: 20131127
  Receipt Date: 20131127
  Transmission Date: 20140711
  Serious: Yes (Death, Hospitalization)
  Sender: FDA-Public Use
  Company Number: PHEH2013US024624

PATIENT
  Age: 6 Year
  Sex: Female

DRUGS (2)
  1. TOBI [Suspect]
     Indication: CEREBRAL PALSY
     Dosage: 300 MG/5 ML, BID
     Dates: start: 20130307
  2. TOBI [Suspect]
     Indication: CYSTIC FIBROSIS

REACTIONS (3)
  - Salmonellosis [Fatal]
  - Shock [Unknown]
  - General physical health deterioration [Unknown]
